FAERS Safety Report 9701452 (Version 2)
Quarter: 2013Q4

REPORT INFORMATION
  Report Type: Spontaneous
  Country: US (occurrence: US)
  Receive Date: 20131121
  Receipt Date: 20131121
  Transmission Date: 20140711
  Serious: No
  Sender: FDA-Public Use
  Company Number: US-GILEAD-2008-0016206

PATIENT
  Age: 77 Year
  Sex: Female

DRUGS (9)
  1. LETAIRIS [Suspect]
     Indication: PULMONARY HYPERTENSION
     Route: 048
     Dates: start: 20080207, end: 20080420
  2. LETAIRIS [Suspect]
     Route: 048
     Dates: end: 20080207
  3. CELEBREX [Concomitant]
     Route: 048
  4. METOPROLOL [Concomitant]
     Route: 048
  5. COZAAR [Concomitant]
     Route: 048
  6. COUMADIN [Concomitant]
     Route: 048
  7. FOSAMAX [Concomitant]
     Route: 048
  8. TRIAM/HCTZ [Concomitant]
     Route: 048
  9. AMLODIPINE [Concomitant]
     Route: 048

REACTIONS (3)
  - Nausea [Unknown]
  - Oral fungal infection [Unknown]
  - Oedema peripheral [Unknown]
